FAERS Safety Report 23150667 (Version 1)
Quarter: 2023Q4

REPORT INFORMATION
  Report Type: Spontaneous
  Country: US (occurrence: US)
  Receive Date: 20231106
  Receipt Date: 20231106
  Transmission Date: 20240109
  Serious: Yes (Hospitalization)
  Sender: FDA-Public Use
  Company Number: US-HALOZYME THERAPEUTICS, INC.-2023-US-SUM-04829

PATIENT

DRUGS (1)
  1. SUMATRIPTAN [Suspect]
     Active Substance: SUMATRIPTAN
     Indication: Migraine
     Dosage: AS NEEDED FOR MIGRAINES

REACTIONS (4)
  - Coronary artery dissection [Recovered/Resolved]
  - Migraine [None]
  - Chest discomfort [Recovered/Resolved]
  - COVID-19 [None]
